APPROVED DRUG PRODUCT: FENOFIBRATE
Active Ingredient: FENOFIBRATE
Strength: 48MG
Dosage Form/Route: TABLET;ORAL
Application: A210476 | Product #001 | TE Code: AB
Applicant: ALEMBIC PHARMACEUTICALS LTD
Approved: Aug 9, 2019 | RLD: No | RS: No | Type: RX